FAERS Safety Report 20103255 (Version 1)
Quarter: 2021Q4

REPORT INFORMATION
  Report Type: Spontaneous
  Country: US (occurrence: None)
  Receive Date: 20211123
  Receipt Date: 20211123
  Transmission Date: 20220303
  Serious: Yes (Other)
  Sender: FDA-Public Use
  Company Number: 2021A810977

PATIENT
  Age: 670 Month
  Sex: Male

DRUGS (10)
  1. CRESTOR [Interacting]
     Active Substance: ROSUVASTATIN CALCIUM
     Dosage: 5.0MG UNKNOWN
     Route: 048
     Dates: start: 201909, end: 201911
  2. JYNARQUE [Interacting]
     Active Substance: TOLVAPTAN
     Indication: Congenital cystic kidney disease
     Route: 048
     Dates: start: 201908, end: 201909
  3. JYNARQUE [Interacting]
     Active Substance: TOLVAPTAN
     Indication: Congenital cystic kidney disease
     Route: 048
     Dates: start: 20190809
  4. JYNARQUE [Interacting]
     Active Substance: TOLVAPTAN
     Indication: Congenital cystic kidney disease
     Route: 048
     Dates: start: 201908, end: 201909
  5. ELIQUIS [Concomitant]
     Active Substance: APIXABAN
     Indication: Product used for unknown indication
  6. ALLOPURINOL [Concomitant]
     Active Substance: ALLOPURINOL
  7. LOSARTAN [Concomitant]
     Active Substance: LOSARTAN
  8. PROPAFENONE [Concomitant]
     Active Substance: PROPAFENONE
  9. TRAZODONE [Concomitant]
     Active Substance: TRAZODONE HYDROCHLORIDE
  10. ATORVASTATIN [Concomitant]
     Active Substance: ATORVASTATIN
     Dates: start: 201911

REACTIONS (3)
  - Pollakiuria [Unknown]
  - Hepatic enzyme increased [Unknown]
  - Drug interaction [Unknown]

NARRATIVE: CASE EVENT DATE: 20191001
